FAERS Safety Report 14587209 (Version 1)
Quarter: 2018Q1

REPORT INFORMATION
  Report Type: Spontaneous
  Country: US (occurrence: US)
  Receive Date: 20180228
  Receipt Date: 20180228
  Transmission Date: 20180509
  Serious: No
  Sender: FDA-Public Use
  Company Number: None

PATIENT
  Age: 71 Year
  Sex: Female
  Weight: 72.7 kg

DRUGS (1)
  1. VOTRIENT [Suspect]
     Active Substance: PAZOPANIB HYDROCHLORIDE
     Indication: RENAL CANCER
     Dosage: FREQUENCY - 4T ONCE A DAY
     Route: 048
     Dates: start: 20171127

REACTIONS (2)
  - Glossodynia [None]
  - Oral pain [None]

NARRATIVE: CASE EVENT DATE: 20171220
